FAERS Safety Report 4609339-8 (Version None)
Quarter: 2005Q1

REPORT INFORMATION
  Report Type: 
  Country: None (occurrence: None)
  Receive Date: 20050314
  Receipt Date: 20050301
  Transmission Date: 20050727
  Serious: Yes (Hospitalization)
  Sender: FDA-Public Use
  Company Number: 2005042077

PATIENT
  Age: 79 Year
  Sex: Female
  Weight: 66 kg

DRUGS (12)
  1. PREDNISONE [Suspect]
     Indication: TEMPORAL ARTERITIS
     Dosage: ORAL
     Route: 048
     Dates: start: 20040922
  2. METFORMIN HCL [Concomitant]
  3. ROSIGLITAZONE (ROSIGLITAZONE) [Concomitant]
  4. FUROSEMIDE [Concomitant]
  5. AMITRIPTYLINE HCL [Concomitant]
  6. TEMAZEPAM [Concomitant]
  7. OMEPRAZOLE [Concomitant]
  8. ATORVASTATIN (ATORVASTATIN) [Concomitant]
  9. APOREX (DEXTROPROPOYPHENE HYDROCHLORIDE, PARACETAMOL) [Concomitant]
  10. ASPIRIN [Concomitant]
  11. RISEDRONIC ACID (RISEDRONIC ACID) [Concomitant]
  12. LEKOVIT CA (CALCIUM CARBONATE, COLECALCIFEROL) [Concomitant]

REACTIONS (3)
  - HYPERGLYCAEMIA [None]
  - MYOPATHY [None]
  - THERAPY NON-RESPONDER [None]
